FAERS Safety Report 6523352-5 (Version None)
Quarter: 2009Q4

REPORT INFORMATION
  Report Type: 
  Country: None (occurrence: None)
  Receive Date: 20091231
  Receipt Date: 20091222
  Transmission Date: 20100525
  Serious: Yes (Other)
  Sender: FDA-Public Use
  Company Number: GB-ROCHE-578732

PATIENT
  Sex: Female
  Weight: 65 kg

DRUGS (2)
  1. ISOTRETINOIN [Suspect]
     Indication: ACNE
     Route: 048
     Dates: start: 20080407, end: 20080620
  2. NORDETTE-28 [Suspect]
     Indication: CONTRACEPTION
     Route: 048

REACTIONS (2)
  - ABORTION INDUCED [None]
  - PREGNANCY ON ORAL CONTRACEPTIVE [None]
